FAERS Safety Report 18066980 (Version 1)
Quarter: 2020Q3

REPORT INFORMATION
  Report Type: Spontaneous
  Country: GB (occurrence: GB)
  Receive Date: 20200724
  Receipt Date: 20200724
  Transmission Date: 20201103
  Serious: Yes (Disabling, Other)
  Sender: FDA-Public Use
  Company Number: GB-MYLANLABS-2020M1066119

PATIENT
  Age: 68 Year
  Sex: Male
  Weight: 88 kg

DRUGS (11)
  1. OMEPRAZOLE. [Suspect]
     Active Substance: OMEPRAZOLE
     Indication: PRODUCT USED FOR UNKNOWN INDICATION
     Dosage: 20 MILLIGRAM, QD
     Dates: start: 20200316
  2. CETIRIZINE [Concomitant]
     Active Substance: CETIRIZINE HYDROCHLORIDE
     Dosage: 1 DOSAGE FORM, QD
     Dates: start: 20180822
  3. MOMETASONE [Concomitant]
     Active Substance: MOMETASONE
     Dosage: APPLY TO THE AFFECTED AREA, FOR 2 ...
     Dates: start: 20200702
  4. CANDESARTAN. [Concomitant]
     Active Substance: CANDESARTAN
     Dosage: 1 DOSAGE FORM, QD
     Dates: start: 20180822
  5. CAPASAL [Concomitant]
     Dosage: 1 DOSAGE FORM, QD
     Dates: start: 20200625
  6. CASSIA SENNA [Concomitant]
     Active Substance: HERBALS\SENNOSIDES
     Dosage: AT NIGHT
     Dates: start: 20180822
  7. CETRABEN                           /01690401/ [Concomitant]
     Dosage: USE AS DIRECTED
     Dates: start: 20200625
  8. SILDENAFIL. [Concomitant]
     Active Substance: SILDENAFIL
     Indication: RAYNAUD^S PHENOMENON
     Dosage: 3 DOSAGE FORM, QD
     Dates: start: 20191127
  9. ATORVASTATIN [Concomitant]
     Active Substance: ATORVASTATIN
     Dosage: IN EVENING
     Dates: start: 20180822
  10. MAGNESIUM HYDROXIDE. [Concomitant]
     Active Substance: MAGNESIUM HYDROXIDE
     Dosage: TAKE 30?45MLS (MIXED WITH WATER) BEFORE BEDTIME...
     Dates: start: 20191210
  11. ACETYLSALICYLIC ACID [Concomitant]
     Active Substance: ASPIRIN
     Dosage: 1 DOSAGE FORM, QD
     Dates: start: 20180822

REACTIONS (1)
  - Lichenoid keratosis [Unknown]

NARRATIVE: CASE EVENT DATE: 20200703
